FAERS Safety Report 8097206-X (Version None)
Quarter: 2012Q1

REPORT INFORMATION
  Report Type: 
  Country: None (occurrence: None)
  Receive Date: 20120128
  Receipt Date: 20110714
  Transmission Date: 20120608
  Serious: No
  Sender: FDA-Public Use
  Company Number: US-ABBOTT-11P-163-0839168-00

PATIENT
  Sex: Female

DRUGS (4)
  1. METOPROLOL TARTRATE [Concomitant]
     Indication: HYPERTENSION
     Route: 048
  2. HUMIRA [Suspect]
     Indication: RHEUMATOID ARTHRITIS
     Route: 058
     Dates: start: 20101001
  3. ARAVA [Suspect]
     Route: 048
     Dates: end: 20110401
  4. ARAVA [Suspect]
     Indication: RHEUMATOID ARTHRITIS
     Route: 048
     Dates: start: 20110401

REACTIONS (4)
  - INJECTION SITE PRURITUS [None]
  - HEPATIC ENZYME INCREASED [None]
  - INJECTION SITE HAEMATOMA [None]
  - PAIN [None]
